FAERS Safety Report 6152227-9 (Version None)
Quarter: 2009Q2

REPORT INFORMATION
  Report Type: 
  Country: None (occurrence: None)
  Receive Date: 20090410
  Receipt Date: 20081111
  Transmission Date: 20091009
  Serious: No
  Sender: FDA-Public Use
  Company Number: US-ASTRAZENECA-2008UW25269

PATIENT
  Age: 58 Year
  Sex: Male
  Weight: 112.5 kg

DRUGS (5)
  1. ZESTORETIC [Suspect]
     Indication: HYPERTENSION
     Dosage: 20/25
     Route: 048
     Dates: start: 20080201
  2. LAMISIL [Concomitant]
  3. NIASPAN [Concomitant]
  4. MULTI-VITAMIN [Concomitant]
  5. B VITAMIN [Concomitant]

REACTIONS (4)
  - DRY THROAT [None]
  - GASTROOESOPHAGEAL REFLUX DISEASE [None]
  - INCREASED UPPER AIRWAY SECRETION [None]
  - PHARYNGEAL OEDEMA [None]
